FAERS Safety Report 5448170-0 (Version None)
Quarter: 2007Q3

REPORT INFORMATION
  Report Type: 
  Country: None (occurrence: None)
  Receive Date: 20070905
  Receipt Date: 20070822
  Transmission Date: 20080115
  Serious: Yes (Life-Threatening)
  Sender: FDA-Public Use
  Company Number: GXKR2007GB07274

PATIENT
  Age: 54 Year
  Sex: Male

DRUGS (4)
  1. METHADONE HCL [Suspect]
     Dosage: 60 MG, DAILY, ORAL, INTRAVENOUS
     Route: 048
  2. MORPHINE [Concomitant]
  3. ANTIEMITICS (NO INGREDIENTS/SUBSTANCES) [Concomitant]
  4. LORAZEPAM [Concomitant]

REACTIONS (20)
  - ABDOMINAL PAIN UPPER [None]
  - ACUTE RESPIRATORY FAILURE [None]
  - AGITATION [None]
  - ALCOHOL WITHDRAWAL SYNDROME [None]
  - ASPIRATION [None]
  - CARDIAC ARREST [None]
  - COLLAPSE OF LUNG [None]
  - CONFUSIONAL STATE [None]
  - ELECTROCARDIOGRAM P WAVE ABNORMAL [None]
  - ELECTROCARDIOGRAM T WAVE BIPHASIC [None]
  - HYPOKALAEMIA [None]
  - LEFT VENTRICULAR HYPERTROPHY [None]
  - LONG QT SYNDROME [None]
  - LUNG CONSOLIDATION [None]
  - SUPRAVENTRICULAR EXTRASYSTOLES [None]
  - TACHYPNOEA [None]
  - TORSADE DE POINTES [None]
  - VENTRICULAR EXTRASYSTOLES [None]
  - VENTRICULAR FIBRILLATION [None]
  - VOMITING [None]
